FAERS Safety Report 8575121-2 (Version None)
Quarter: 2012Q2

REPORT INFORMATION
  Report Type: 
  Country: None (occurrence: None)
  Receive Date: 20120423
  Receipt Date: 20090728
  Transmission Date: 20120825
  Serious: Yes (Hospitalization)
  Sender: FDA-Public Use
  Company Number: PHEH2009US07847

PATIENT
  Sex: Male

DRUGS (7)
  1. NORVASC [Concomitant]
  2. EXJADE [Suspect]
     Indication: SERUM FERRITIN INCREASED
     Dosage: 2000 MG, QD, ORAL
     Route: 048
     Dates: start: 20060824, end: 20061113
  3. PROTONIX [Concomitant]
  4. BENICAR [Concomitant]
  5. TOPROL-XL [Concomitant]
  6. LEVOTHYROXINE SODIUM [Concomitant]
  7. BENICAR [Concomitant]

REACTIONS (6)
  - CHROMATURIA [None]
  - BLOOD PRESSURE INCREASED [None]
  - RENAL FAILURE [None]
  - TACHYCARDIA [None]
  - OEDEMA [None]
  - PROTEINURIA [None]
